FAERS Safety Report 12324516 (Version 1)
Quarter: 2016Q2

REPORT INFORMATION
  Report Type: Report from Study
  Country: US (occurrence: US)
  Receive Date: 20160502
  Receipt Date: 20160502
  Transmission Date: 20160815
  Serious: No
  Sender: FDA-Public Use
  Company Number: US-ABBVIE-15P-163-1471625-00

PATIENT
  Sex: Female

DRUGS (1)
  1. ANDROGEL [Suspect]
     Active Substance: TESTOSTERONE
     Indication: ACCIDENTAL EXPOSURE TO PRODUCT
     Route: 061

REACTIONS (7)
  - Unevaluable event [Unknown]
  - Palpitations [Unknown]
  - Dyspnoea [Unknown]
  - Accidental exposure to product [Unknown]
  - Breast tenderness [Unknown]
  - Dizziness [Unknown]
  - Asthenia [Unknown]
